FAERS Safety Report 24277774 (Version 1)
Quarter: 2024Q3

REPORT INFORMATION
  Report Type: Spontaneous
  Country: CO (occurrence: CO)
  Receive Date: 20240903
  Receipt Date: 20240903
  Transmission Date: 20241017
  Serious: Yes (Other)
  Sender: NOVO NORDISK
  Company Number: CO-NOVOPROD-1275503

PATIENT
  Age: 36 Year
  Sex: Female
  Weight: 60 kg

DRUGS (5)
  1. SAXENDA [Suspect]
     Active Substance: LIRAGLUTIDE
     Indication: Overweight
     Dosage: 3.00 MG
  2. SAXENDA [Suspect]
     Active Substance: LIRAGLUTIDE
     Dosage: 0.6 MG (RESTARTED)
  3. XIGDUO XR [Concomitant]
     Active Substance: DAPAGLIFLOZIN PROPANEDIOL\METFORMIN HYDROCHLORIDE
     Indication: Obesity
     Dosage: UNK
  4. ORLISTAT [Concomitant]
     Active Substance: ORLISTAT
     Indication: Obesity
     Dosage: UNK
  5. LIPOGRAS [Concomitant]
     Indication: Product used for unknown indication
     Dosage: UNK

REACTIONS (5)
  - Von Willebrand^s disease [Unknown]
  - Blood iron decreased [Unknown]
  - Anxiety [Unknown]
  - Nausea [Unknown]
  - Vomiting [Unknown]
